FAERS Safety Report 12534571 (Version 1)
Quarter: 2016Q3

REPORT INFORMATION
  Report Type: Spontaneous
  Country: None (occurrence: US)
  Receive Date: 20160706
  Receipt Date: 20160706
  Transmission Date: 20161109
  Serious: Yes (Other)
  Sender: FDA-Public Use
  Company Number: US-ALLERGAN-1662001US

PATIENT
  Age: 15 Year
  Sex: Male

DRUGS (2)
  1. MESALAZINE UNK [Suspect]
     Active Substance: MESALAMINE
     Indication: COLITIS ULCERATIVE
     Route: 048
  2. PREDNISOLONE. [Concomitant]
     Active Substance: PREDNISOLONE
     Dosage: 10 MG, QD

REACTIONS (8)
  - Exercise tolerance decreased [Unknown]
  - Fatigue [Unknown]
  - Lung infiltration [Unknown]
  - Cough [Unknown]
  - Hypoxia [Unknown]
  - Dyspnoea [Unknown]
  - Lung disorder [Unknown]
  - Antineutrophil cytoplasmic antibody positive [Unknown]
